FAERS Safety Report 19822670 (Version 6)
Quarter: 2022Q1

REPORT INFORMATION
  Report Type: Spontaneous
  Country: US (occurrence: US)
  Receive Date: 20210913
  Receipt Date: 20220315
  Transmission Date: 20220423
  Serious: Yes (Hospitalization)
  Sender: FDA-Public Use
  Company Number: US-GLOBAL BLOOD THERAPEUTICS INC-US-GBT-21-02055

PATIENT
  Sex: Male

DRUGS (12)
  1. OXBRYTA [Suspect]
     Active Substance: VOXELOTOR
     Indication: Thalassaemia sickle cell
     Dosage: EVERY DAY AT 3 AM
     Route: 048
     Dates: start: 20210927
  2. OXBRYTA [Suspect]
     Active Substance: VOXELOTOR
     Dosage: EVERY DAY AT 3 AM
     Route: 048
     Dates: start: 20210727
  3. FOLIC ACID [Concomitant]
     Active Substance: FOLIC ACID
     Indication: Sickle cell disease
  4. MELOXICAM [Concomitant]
     Active Substance: MELOXICAM
     Indication: Arthralgia
  5. FAMOTIDINE [Concomitant]
     Active Substance: FAMOTIDINE
     Indication: Gastrooesophageal reflux disease
  6. HYDROXYUREA [Concomitant]
     Active Substance: HYDROXYUREA
     Indication: Sickle cell disease
  7. LISINOPRIL [Concomitant]
     Active Substance: LISINOPRIL
     Indication: Hypertension
     Dosage: NOT PROVIDED
  8. GABAPENTIN [Concomitant]
     Active Substance: GABAPENTIN
     Indication: Neuralgia
  9. MORPHINE SULFATE [Concomitant]
     Active Substance: MORPHINE SULFATE
     Indication: Pain
  10. HYDROMORPHONE [Concomitant]
     Active Substance: HYDROMORPHONE
     Indication: Pain
  11. CARVEDILOL [Concomitant]
     Active Substance: CARVEDILOL
     Indication: Cardiac disorder
  12. TRANSFUSION [Concomitant]
     Indication: Cerebrovascular accident
     Dosage: NOT PROVIDED
     Dates: start: 2021, end: 2021

REACTIONS (15)
  - COVID-19 [Unknown]
  - Sickle cell anaemia with crisis [Unknown]
  - Cerebrovascular accident [Unknown]
  - Sickle cell anaemia with crisis [Not Recovered/Not Resolved]
  - Musculoskeletal stiffness [Unknown]
  - Migraine [Unknown]
  - Peripheral swelling [Unknown]
  - Sickle cell anaemia with crisis [Unknown]
  - Gastrooesophageal reflux disease [Unknown]
  - Sickle cell anaemia with crisis [Recovered/Resolved]
  - Headache [Unknown]
  - Abdominal pain upper [Unknown]
  - Nausea [Unknown]
  - Diarrhoea [Unknown]
  - Product dose omission issue [Unknown]

NARRATIVE: CASE EVENT DATE: 20210101
